FAERS Safety Report 24001459 (Version 3)
Quarter: 2024Q3

REPORT INFORMATION
  Report Type: Report from Study
  Country: JP (occurrence: JP)
  Receive Date: 20240621
  Receipt Date: 20240722
  Transmission Date: 20241017
  Serious: Yes (Hospitalization)
  Sender: EISAI
  Company Number: JP-Eisai-202403306_LEQ_P_1

PATIENT
  Age: 78 Year
  Sex: Female
  Weight: 36 kg

DRUGS (8)
  1. LEQEMBI [Suspect]
     Active Substance: LECANEMAB-IRMB
     Indication: Dementia Alzheimer^s type
     Route: 042
     Dates: start: 20240514
  2. LEQEMBI [Suspect]
     Active Substance: LECANEMAB-IRMB
     Route: 042
     Dates: start: 20240611, end: 20240611
  3. NORSPAN [Concomitant]
     Active Substance: BUPRENORPHINE
     Indication: Dementia Alzheimer^s type
     Dosage: DOSAGE UNKNOWN
  4. PROCHLORPERAZINE MALEATE [Concomitant]
     Active Substance: PROCHLORPERAZINE MALEATE
     Indication: Dementia Alzheimer^s type
     Dosage: DOSAGE UNKOWN
  5. AMLODIPINE BESYLATE [Concomitant]
     Active Substance: AMLODIPINE BESYLATE
     Indication: Dementia Alzheimer^s type
     Dosage: DOSAGE UNKNOWN
  6. OLMESARTAN MEDOXOMIL [Concomitant]
     Active Substance: OLMESARTAN MEDOXOMIL
     Indication: Dementia Alzheimer^s type
     Dosage: DOSAGE UNKNOWN
  7. CELECOXIB [Concomitant]
     Active Substance: CELECOXIB
     Indication: Dementia Alzheimer^s type
     Dosage: DOSE UNKNOWN
  8. REBAMIPIDE [Concomitant]
     Active Substance: REBAMIPIDE
     Indication: Dementia Alzheimer^s type
     Dosage: DOSE UNKNOWN

REACTIONS (1)
  - Cerebral haemorrhage [Not Recovered/Not Resolved]

NARRATIVE: CASE EVENT DATE: 20240611
